FAERS Safety Report 15841676 (Version 1)
Quarter: 2019Q1

REPORT INFORMATION
  Report Type: Spontaneous
  Country: ES (occurrence: ES)
  Receive Date: 20190118
  Receipt Date: 20190118
  Transmission Date: 20190417
  Serious: Yes (Hospitalization, Other)
  Sender: FDA-Public Use
  Company Number: ES-ASTRAZENECA-2019SE05471

PATIENT
  Age: 80 Year
  Sex: Female

DRUGS (11)
  1. OMEPRAZOLE. [Suspect]
     Active Substance: OMEPRAZOLE
     Route: 065
  2. ATORVASTATIN [Concomitant]
     Active Substance: ATORVASTATIN
  3. ACETYLSALICYLIC ACID [Concomitant]
     Active Substance: ASPIRIN
     Dates: start: 201511
  4. LORMETAZEPAM [Concomitant]
     Active Substance: LORMETAZEPAM
  5. IRBESARTAN. [Concomitant]
     Active Substance: IRBESARTAN
  6. ATORVASTATIN [Concomitant]
     Active Substance: ATORVASTATIN
  7. NIFEDIPINE. [Concomitant]
     Active Substance: NIFEDIPINE
     Dosage: GASTROINTESTINAL THERAPEUTIC SYSTEM (GITS) 30 MG/DAY (FOR THE PREVIOUS 5 MONTHS).
  8. ACETYLSALICYLIC ACID [Concomitant]
     Active Substance: ASPIRIN
  9. LEVOTHYROXINE. [Concomitant]
     Active Substance: LEVOTHYROXINE
  10. IRBESARTAN. [Concomitant]
     Active Substance: IRBESARTAN
     Dates: start: 201511
  11. ATORVASTATIN [Concomitant]
     Active Substance: ATORVASTATIN
     Dates: start: 201512

REACTIONS (2)
  - Hypergammaglobulinaemia [Recovered/Resolved]
  - Tubulointerstitial nephritis [Unknown]
